FAERS Safety Report 7471476-0 (Version None)
Quarter: 2011Q2

REPORT INFORMATION
  Report Type: 
  Country: None (occurrence: None)
  Receive Date: 20110511
  Receipt Date: 20110502
  Transmission Date: 20111010
  Serious: No
  Sender: FDA-Public Use
  Company Number: US-BIOGENIDEC-2010BI032521

PATIENT
  Sex: Female

DRUGS (1)
  1. TYSABRI [Suspect]
     Indication: MULTIPLE SCLEROSIS
     Route: 042
     Dates: start: 20100727

REACTIONS (13)
  - HYPOAESTHESIA [None]
  - HALLUCINATION, AUDITORY [None]
  - FALL [None]
  - PAIN [None]
  - LOSS OF CONSCIOUSNESS [None]
  - CONCUSSION [None]
  - BURNING SENSATION [None]
  - HEAD INJURY [None]
  - LOSS OF CONTROL OF LEGS [None]
  - HEADACHE [None]
  - PAIN IN EXTREMITY [None]
  - MEMORY IMPAIRMENT [None]
  - FATIGUE [None]
